FAERS Safety Report 21962637 (Version 3)
Quarter: 2025Q1

REPORT INFORMATION
  Report Type: Report from Study
  Country: US (occurrence: US)
  Receive Date: 20230207
  Receipt Date: 20250115
  Transmission Date: 20250408
  Serious: No
  Sender: HRA PHARMA
  Company Number: US-HRARD-2021000076

PATIENT
  Age: 45 Year
  Sex: Male

DRUGS (10)
  1. LYSODREN [Suspect]
     Active Substance: MITOTANE
     Indication: Adrenocortical carcinoma
     Dosage: 2000 MG (04 TABS) IN THE MORNING AND 1500 (03 TABS) MG IN THE EVENING
     Dates: start: 20191223, end: 20210226
  2. LYSODREN [Suspect]
     Active Substance: MITOTANE
     Indication: Adrenocortical carcinoma
     Dosage: TAKE 2 TABLETS BY MOUTH TWICE DAILY
     Route: 048
     Dates: start: 20200912
  3. LYSODREN [Suspect]
     Active Substance: MITOTANE
     Indication: Adrenocortical carcinoma
     Dosage: 02 TABLETS TWICE DAILY
     Dates: start: 20201209
  4. LYSODREN [Suspect]
     Active Substance: MITOTANE
     Indication: Adrenocortical carcinoma
     Dosage: 2000 MG (04 TABS) IN THE MORNING AND 1500 (03 TABS) MG IN THE EVENING
     Dates: start: 2021, end: 202109
  5. LYSODREN [Suspect]
     Active Substance: MITOTANE
     Indication: Adrenocortical carcinoma
     Dosage: 02 TABLETS TWICE DAILY
     Dates: start: 202109
  6. LYSODREN [Suspect]
     Active Substance: MITOTANE
     Indication: Adrenocortical carcinoma
     Dosage: 06 TABLETS (3000 MG) TWICE DAILY
  7. LYSODREN [Suspect]
     Active Substance: MITOTANE
     Indication: Adrenocortical carcinoma
     Dosage: 03 TABLETS(1500 MG)  TWICE DAILY
  8. ANASTROZOLE [Concomitant]
     Active Substance: ANASTROZOLE
     Indication: Product used for unknown indication
  9. Prochlorperazine tablet 10mg [Concomitant]
     Indication: Product used for unknown indication
  10. SOLU-CORTEF INJ 1000MG [Concomitant]
     Indication: Product used for unknown indication

REACTIONS (10)
  - Skin lesion [Not Recovered/Not Resolved]
  - Influenza [Unknown]
  - Dehydration [Not Recovered/Not Resolved]
  - Abdominal pain [Not Recovered/Not Resolved]
  - Vomiting [Not Recovered/Not Resolved]
  - Nausea [Not Recovered/Not Resolved]
  - Diarrhoea [Not Recovered/Not Resolved]
  - Headache [Not Recovered/Not Resolved]
  - Dizziness [Not Recovered/Not Resolved]
  - Fatigue [Not Recovered/Not Resolved]

NARRATIVE: CASE EVENT DATE: 20191230
